FAERS Safety Report 8814000 (Version 2)
Quarter: 2012Q4

REPORT INFORMATION
  Report Type: 
  Country: US (occurrence: US)
  Receive Date: 20120928
  Receipt Date: 20121207
  Transmission Date: 20130627
  Serious: No
  Sender: FDA-Public Use
  Company Number: US-PFIZER INC-2012240614

PATIENT
  Age: 55 Year
  Sex: Female
  Weight: 104 kg

DRUGS (4)
  1. PRISTIQ [Suspect]
     Indication: DEPRESSION
     Dosage: 100 mg, daily
     Route: 048
     Dates: start: 20110419, end: 20110531
  2. PRISTIQ [Suspect]
     Dosage: 150 mg, UNK
     Dates: end: 201209
  3. PRISTIQ [Suspect]
     Dosage: 50 mg, UNK
  4. DETROL LA [Concomitant]
     Indication: OVERACTIVE BLADDER
     Dosage: 4 mg, daily

REACTIONS (3)
  - Nausea [Recovered/Resolved]
  - Malaise [Unknown]
  - Gastric disorder [Unknown]
